FAERS Safety Report 9611714 (Version 2)
Quarter: 2013Q4

REPORT INFORMATION
  Report Type: Spontaneous
  Country: US (occurrence: US)
  Receive Date: 20131010
  Receipt Date: 20131025
  Transmission Date: 20140711
  Serious: No
  Sender: FDA-Public Use
  Company Number: US-PFIZER INC-2013287876

PATIENT
  Age: 78 Year
  Sex: Female
  Weight: 43.99 kg

DRUGS (8)
  1. XELJANZ [Suspect]
     Indication: RHEUMATOID ARTHRITIS
     Dosage: 5 MG, 2X/DAY
  2. XELJANZ [Suspect]
     Dosage: 1 PILL DAILY
  3. PREDNISONE [Concomitant]
     Dosage: 6 MG, 1X/DAY
  4. PREDNISONE [Concomitant]
     Dosage: 5 MG, 1X/DAY
  5. CALCIUM WITH VITAMIN D [Concomitant]
     Dosage: UNK
  6. PROCARDIA [Concomitant]
     Dosage: UNK
  7. POTASSIUM [Concomitant]
     Dosage: UNK
  8. RESTASIS [Concomitant]
     Dosage: UNK

REACTIONS (3)
  - Nasopharyngitis [Recovering/Resolving]
  - Abdominal discomfort [Recovering/Resolving]
  - Hand deformity [Recovering/Resolving]
